FAERS Safety Report 16902753 (Version 1)
Quarter: 2019Q4

REPORT INFORMATION
  Report Type: Spontaneous
  Country: FR (occurrence: FR)
  Receive Date: 20191010
  Receipt Date: 20191010
  Transmission Date: 20200122
  Serious: Yes (Death, Hospitalization)
  Sender: FDA-Public Use
  Company Number: FR-ACCORD-157029

PATIENT
  Age: 64 Year
  Sex: Female

DRUGS (16)
  1. NEFOPAM [Concomitant]
     Active Substance: NEFOPAM
  2. LAROXYL [Concomitant]
     Active Substance: AMITRIPTYLINE HYDROCHLORIDE
  3. MORPHINE [Concomitant]
     Active Substance: MORPHINE
  4. LYTOS [Concomitant]
     Active Substance: CLODRONATE DISODIUM
  5. INSTANYL [Concomitant]
     Active Substance: FENTANYL
  6. SOLUPRED (PREDNISOLONE) [Concomitant]
     Active Substance: PREDNISOLONE
  7. SERTRALINE [Concomitant]
     Active Substance: SERTRALINE HYDROCHLORIDE
  8. LOVENOX [Concomitant]
     Active Substance: ENOXAPARIN SODIUM
  9. PREGABALIN. [Concomitant]
     Active Substance: PREGABALIN
  10. GEMCITABINE ACCORD [Suspect]
     Active Substance: GEMCITABINE HYDROCHLORIDE
     Indication: METASTASIS
     Dosage: NON CONNUE
     Route: 042
     Dates: start: 20190823
  11. MIDAZOLAM [Concomitant]
     Active Substance: MIDAZOLAM HYDROCHLORIDE
  12. SERESTA [Concomitant]
     Active Substance: OXAZEPAM
  13. SOPHIDONE [Concomitant]
     Active Substance: HYDROMORPHONE HYDROCHLORIDE
  14. APRANAX [Concomitant]
     Active Substance: NAPROXEN
  15. PROPOFOL. [Concomitant]
     Active Substance: PROPOFOL
  16. LARGACTIL [Concomitant]
     Active Substance: CHLORPROMAZINE

REACTIONS (3)
  - Chest discomfort [Not Recovered/Not Resolved]
  - Acute respiratory distress syndrome [Not Recovered/Not Resolved]
  - Dyspnoea [Not Recovered/Not Resolved]

NARRATIVE: CASE EVENT DATE: 20190823
